FAERS Safety Report 7178383-1 (Version None)
Quarter: 2010Q4

REPORT INFORMATION
  Report Type: 
  Country: None (occurrence: None)
  Receive Date: 20101220
  Receipt Date: 20101213
  Transmission Date: 20110411
  Serious: Yes (Other)
  Sender: FDA-Public Use
  Company Number: US-US-EMD SERONO, INC.-7031990

PATIENT
  Sex: Female
  Weight: 111 kg

DRUGS (2)
  1. REBIF [Suspect]
     Indication: MULTIPLE SCLEROSIS
     Route: 058
     Dates: start: 20100901, end: 20101013
  2. REBIF [Suspect]
     Route: 058
     Dates: start: 20101013

REACTIONS (4)
  - ARTHRALGIA [None]
  - INFLUENZA LIKE ILLNESS [None]
  - PLANTAR FASCIITIS [None]
  - PROCEDURAL PAIN [None]
